FAERS Safety Report 7241149-8 (Version None)
Quarter: 2011Q1

REPORT INFORMATION
  Report Type: 
  Country: None (occurrence: None)
  Receive Date: 20110124
  Receipt Date: 20110120
  Transmission Date: 20110831
  Serious: Yes (Hospitalization)
  Sender: FDA-Public Use
  Company Number: US-AMGEN-KDC395412

PATIENT
  Age: 67 Year
  Sex: Female

DRUGS (17)
  1. INSULIN GLARGINE [Concomitant]
     Dosage: 44 IU, Q12H
     Route: 058
  2. PANTOPRAZOLE SODIUM [Concomitant]
     Dosage: 40 MG, BID
     Route: 048
  3. LORAZEPAM [Concomitant]
     Dosage: .5 MG, PRN
  4. AMG 102 [Suspect]
     Indication: NEOPLASM MALIGNANT
     Dosage: UNK UNK, Q2WK
     Route: 042
     Dates: start: 20090730
  5. ATENOLOL [Concomitant]
     Dosage: 25 MG, QD
     Route: 048
  6. FENOFIBRATE [Concomitant]
     Dosage: 145 MG, QD
     Route: 048
  7. VECTIBIX [Suspect]
     Indication: NEOPLASM MALIGNANT
     Dosage: 660 MG, Q2WK
     Route: 042
     Dates: start: 20090730
  8. RANITIDINE HYDROCHLORIDE [Concomitant]
     Dosage: 150 MG, BID
     Route: 048
  9. ERGOCALCIFEROL [Concomitant]
     Dosage: 800 MG, QD
     Route: 048
  10. MODAFINIL [Concomitant]
     Dosage: 100 MG, PRN
  11. PROCHLORPERAZINE EDISYLATE [Concomitant]
     Dosage: 10 MG, PRN
  12. LEVOTHYROXINE SODIUM [Concomitant]
     Dosage: 150 A?G, QD
     Route: 048
  13. BUDESONIDE [Concomitant]
     Dosage: UNK UNK, QD
     Route: 045
  14. ACETAMINOPHEN [Concomitant]
     Dosage: UNK UNK, BID
     Route: 048
  15. FUROSEMIDE [Concomitant]
     Dosage: 40 MG, QOD
  16. FEXOFENADINE HCL [Concomitant]
     Dosage: 180 MG, QD
     Route: 048
  17. DOCUSATE SODIUM [Concomitant]
     Dosage: UNK UNK, QD
     Route: 048

REACTIONS (4)
  - PLEURAL EFFUSION [None]
  - INTESTINAL OBSTRUCTION [None]
  - HYPOMAGNESAEMIA [None]
  - PNEUMONIA [None]
